FAERS Safety Report 5449252-X (Version None)
Quarter: 2007Q3

REPORT INFORMATION
  Report Type: 
  Country: None (occurrence: None)
  Receive Date: 20070911
  Receipt Date: 20070830
  Transmission Date: 20080115
  Serious: Yes (Other)
  Sender: FDA-Public Use
  Company Number: US-SHR-US-2007-033096

PATIENT
  Age: 63 Year
  Sex: Female
  Weight: 109.75 kg

DRUGS (17)
  1. CAMPATH [Suspect]
     Dosage: 30 MG, 1 DOSE
     Route: 042
     Dates: start: 20050903, end: 20050903
  2. CAMPATH [Suspect]
     Dosage: 30 MG, 1 DOSE
     Route: 042
     Dates: start: 20050908, end: 20050908
  3. TACROLIMUS [Suspect]
     Dosage: 1.5 MG, Q A.M.
     Route: 048
     Dates: start: 20050904
  4. TACROLIMUS [Suspect]
     Dosage: 1 MG, EVERY P.M.
     Route: 048
     Dates: start: 20050904
  5. SEPTRA DS [Concomitant]
     Dates: start: 20050912
  6. INDERAL [Concomitant]
     Dates: start: 20060124
  7. PROTONIX [Concomitant]
     Dates: start: 20051101
  8. LASIX [Concomitant]
     Dates: start: 20051101
  9. NORVASC [Concomitant]
     Dates: start: 20051129
  10. ZESTRIL [Concomitant]
     Dates: start: 20051101
  11. PROZAC [Concomitant]
     Dates: start: 20051018
  12. LANTUS [Concomitant]
     Dates: start: 20051004
  13. REGULAR INSULIN [Concomitant]
     Dates: start: 20051004
  14. ALBUTEROL [Concomitant]
     Dates: start: 20051004
  15. CLARITIN [Concomitant]
     Dates: start: 20051101
  16. MULTIVITAMIN ^LAPPE^ [Concomitant]
     Dates: start: 20051014
  17. FERROUS SULFATE TAB [Concomitant]
     Dates: start: 20060606

REACTIONS (1)
  - LIVER TRANSPLANT REJECTION [None]
